FAERS Safety Report 13353666 (Version 1)
Quarter: 2017Q1

REPORT INFORMATION
  Report Type: Spontaneous
  Country: US (occurrence: US)
  Receive Date: 20170319
  Receipt Date: 20170319
  Transmission Date: 20170429
  Serious: No
  Sender: FDA-Public Use
  Company Number: None

PATIENT
  Age: 71 Year
  Sex: Female

DRUGS (1)
  1. HUMALOG KWIKPEN [Suspect]
     Active Substance: INSULIN LISPRO

REACTIONS (4)
  - Liquid product physical issue [None]
  - Product contamination physical [None]
  - Myalgia [None]
  - Wrong technique in product usage process [None]

NARRATIVE: CASE EVENT DATE: 20170318
